FAERS Safety Report 14500162 (Version 1)
Quarter: 2018Q1

REPORT INFORMATION
  Report Type: Not Available
  Country: US (occurrence: US)
  Receive Date: 20180207
  Receipt Date: 20180207
  Transmission Date: 20180509
  Serious: No
  Sender: FDA-Public Use
  Company Number: US-FOUNDATIONCONSUMERHC-2017-US-014889

PATIENT
  Age: 32 Year
  Sex: Female
  Weight: 52.16 kg

DRUGS (2)
  1. PLAN B ONE-STEP [Suspect]
     Active Substance: LEVONORGESTREL
     Dosage: TOOK 1 DOSE X 1
     Route: 048
     Dates: start: 20171125, end: 20171125
  2. PLAN B ONE-STEP [Suspect]
     Active Substance: LEVONORGESTREL
     Dosage: 1 TABLET X1 DOSE
     Route: 048
     Dates: start: 2016, end: 2016

REACTIONS (2)
  - Depressed mood [Unknown]
  - Menstruation delayed [Unknown]

NARRATIVE: CASE EVENT DATE: 20171125
